FAERS Safety Report 9092128 (Version 1)
Quarter: 2013Q1

REPORT INFORMATION
  Report Type: Report from Study
  Country: US (occurrence: US)
  Receive Date: 20130131
  Receipt Date: 20130131
  Transmission Date: 20140127
  Serious: No
  Sender: FDA-Public Use
  Company Number: US-ABBOTT-12P-163-1003126-00

PATIENT
  Age: 8 Year
  Sex: Male

DRUGS (8)
  1. DUREZOL [Concomitant]
     Indication: GLAUCOMA
     Dosage: 1 DROP
     Route: 047
  2. ZOLAMIDE [Concomitant]
     Indication: PRODUCT USED FOR UNKNOWN INDICATION
  3. HUMIRA [Suspect]
     Indication: PRODUCT USED FOR UNKNOWN INDICATION
     Route: 058
     Dates: start: 20121002
  4. METHOTREXATE [Concomitant]
     Indication: PRODUCT USED FOR UNKNOWN INDICATION
     Dosage: 6 TABS
  5. FOLIC ACID [Concomitant]
     Indication: PRODUCT USED FOR UNKNOWN INDICATION
     Dosage: DAILY
  6. XALATAN [Concomitant]
     Indication: GLAUCOMA
     Dosage: 1 DROP LEFT EYE
     Route: 047
  7. DORZOLAMIDE [Concomitant]
     Indication: GLAUCOMA
     Dosage: 1 DROP LEFT EYE
     Route: 047
  8. ALPHAGAN [Concomitant]
     Indication: PRODUCT USED FOR UNKNOWN INDICATION
     Dosage: 1 DROP LEFT EYE
     Route: 047

REACTIONS (2)
  - Incorrect drug administration duration [Unknown]
  - Injection site pain [Not Recovered/Not Resolved]
